FAERS Safety Report 22258761 (Version 1)
Quarter: 2023Q2

REPORT INFORMATION
  Report Type: Spontaneous
  Country: CA (occurrence: CA)
  Receive Date: 20230427
  Receipt Date: 20230427
  Transmission Date: 20230722
  Serious: Yes (Other)
  Sender: FDA-Public Use
  Company Number: CA-BAYER-2023A058291

PATIENT
  Age: 52 Year
  Sex: Female

DRUGS (1)
  1. YASMIN [Suspect]
     Active Substance: DROSPIRENONE\ETHINYL ESTRADIOL
     Dosage: UNK
     Route: 048
     Dates: start: 20060210, end: 20080208

REACTIONS (6)
  - Pulmonary embolism [None]
  - Deep vein thrombosis [None]
  - Pneumonia [None]
  - Chest pain [None]
  - Cholelithiasis [None]
  - Atelectasis [None]
